FAERS Safety Report 16306397 (Version 4)
Quarter: 2019Q3

REPORT INFORMATION
  Report Type: Spontaneous
  Country: US (occurrence: US)
  Receive Date: 20190513
  Receipt Date: 20190812
  Transmission Date: 20191004
  Serious: Yes (Other)
  Sender: FDA-Public Use
  Company Number: US-ASTRAZENECA-2018SF33394

PATIENT
  Age: 61 Year
  Sex: Male
  Weight: 68 kg

DRUGS (57)
  1. NITROGLYCERIN. [Concomitant]
     Active Substance: NITROGLYCERIN
  2. MULTIVITAMINS [Concomitant]
     Active Substance: VITAMINS
  3. FOSAMAX [Concomitant]
     Active Substance: ALENDRONATE SODIUM
  4. ZEBETA [Concomitant]
     Active Substance: BISOPROLOL FUMARATE
  5. ATORVASTATIN [Concomitant]
     Active Substance: ATORVASTATIN
  6. FLUOXETINE [Concomitant]
     Active Substance: FLUOXETINE HYDROCHLORIDE
  7. PAROXETINE. [Concomitant]
     Active Substance: PAROXETINE
  8. VENLAFAXINE [Concomitant]
     Active Substance: VENLAFAXINE HYDROCHLORIDE
  9. CEPHALEXIN. [Concomitant]
     Active Substance: CEPHALEXIN
  10. HYDROCODONE [Concomitant]
     Active Substance: HYDROCODONE
  11. NIFEDIPINE. [Concomitant]
     Active Substance: NIFEDIPINE
  12. PRAVASTATIN. [Concomitant]
     Active Substance: PRAVASTATIN
  13. QVAR [Concomitant]
     Active Substance: BECLOMETHASONE DIPROPIONATE
  14. TRAMADOL. [Concomitant]
     Active Substance: TRAMADOL
  15. DOXAZOSIN [Concomitant]
     Active Substance: DOXAZOSIN MESYLATE
  16. NITROSTAT [Concomitant]
     Active Substance: NITROGLYCERIN
  17. FISH OIL [Concomitant]
     Active Substance: FISH OIL
  18. PRILOSEC OTC [Suspect]
     Active Substance: OMEPRAZOLE MAGNESIUM
     Indication: GASTROOESOPHAGEAL REFLUX DISEASE
     Route: 048
     Dates: start: 2015, end: 2017
  19. FUROSEMIDE. [Concomitant]
     Active Substance: FUROSEMIDE
  20. LIDODERM [Concomitant]
     Active Substance: LIDOCAINE
  21. VITAMIN D [Concomitant]
     Active Substance: VITAMIN D NOS
  22. NORCO [Concomitant]
     Active Substance: ACETAMINOPHEN\HYDROCODONE BITARTRATE
  23. ACYCLOVIR. [Concomitant]
     Active Substance: ACYCLOVIR
  24. CARVEDILOL. [Concomitant]
     Active Substance: CARVEDILOL
  25. CALCITROL [Concomitant]
  26. HYDRALAZINE [Concomitant]
     Active Substance: HYDRALAZINE HYDROCHLORIDE
  27. LORAZEPAM. [Concomitant]
     Active Substance: LORAZEPAM
  28. NORTRIPTYLINE [Concomitant]
     Active Substance: NORTRIPTYLINE
  29. SIMVASTATIN. [Concomitant]
     Active Substance: SIMVASTATIN
  30. DILAUDID [Concomitant]
     Active Substance: HYDROMORPHONE HYDROCHLORIDE
  31. CLONIDINE. [Concomitant]
     Active Substance: CLONIDINE
  32. GABAPENTIN. [Concomitant]
     Active Substance: GABAPENTIN
  33. ISOSORB [Concomitant]
  34. LISINOPRIL. [Concomitant]
     Active Substance: LISINOPRIL
  35. LOSARTAN. [Concomitant]
     Active Substance: LOSARTAN
  36. PREDNISONE. [Concomitant]
     Active Substance: PREDNISONE
  37. PEPCID [Concomitant]
     Active Substance: FAMOTIDINE
  38. CALCIUM [Concomitant]
     Active Substance: CALCIUM
  39. SERTRALINE [Concomitant]
     Active Substance: SERTRALINE HYDROCHLORIDE
  40. CRESTOR [Concomitant]
     Active Substance: ROSUVASTATIN CALCIUM
  41. TERAZOSIN [Concomitant]
     Active Substance: TERAZOSIN HYDROCHLORIDE
  42. PRILOSEC OTC [Suspect]
     Active Substance: OMEPRAZOLE MAGNESIUM
     Indication: GASTROOESOPHAGEAL REFLUX DISEASE
     Route: 048
     Dates: start: 2006, end: 2017
  43. ASPIRIN. [Concomitant]
     Active Substance: ASPIRIN
  44. ALPRAZOLAM. [Concomitant]
     Active Substance: ALPRAZOLAM
  45. BENZONATATE. [Concomitant]
     Active Substance: BENZONATATE
  46. ZOLPIDEM [Concomitant]
     Active Substance: ZOLPIDEM TARTRATE
  47. PROAIR HFA [Concomitant]
     Active Substance: ALBUTEROL SULFATE
  48. OMEPRAZOLE. [Suspect]
     Active Substance: OMEPRAZOLE
     Indication: GASTROOESOPHAGEAL REFLUX DISEASE
     Route: 065
     Dates: start: 2006, end: 2015
  49. ALBUTEROL. [Concomitant]
     Active Substance: ALBUTEROL
  50. CEFPODOXIME [Concomitant]
     Active Substance: CEFPODOXIME
  51. FELODIPINE. [Concomitant]
     Active Substance: FELODIPINE
  52. K-TAB [Concomitant]
     Active Substance: POTASSIUM CHLORIDE
  53. LABETALOL [Concomitant]
     Active Substance: LABETALOL\LABETALOL HYDROCHLORIDE
  54. METOPROLOL TARTRATE. [Concomitant]
     Active Substance: METOPROLOL TARTRATE
  55. MINOXIDIL. [Concomitant]
     Active Substance: MINOXIDIL
  56. SPIRONOLACTONE. [Concomitant]
     Active Substance: SPIRONOLACTONE
  57. CIMETIDINE [Concomitant]
     Active Substance: CIMETIDINE

REACTIONS (6)
  - Nephrogenic anaemia [Unknown]
  - Acute kidney injury [Not Recovered/Not Resolved]
  - Renal failure [Unknown]
  - Hyperparathyroidism secondary [Unknown]
  - End stage renal disease [Unknown]
  - Chronic kidney disease [Not Recovered/Not Resolved]

NARRATIVE: CASE EVENT DATE: 2006
